FAERS Safety Report 24876278 (Version 1)
Quarter: 2025Q1

REPORT INFORMATION
  Report Type: Spontaneous
  Country: US (occurrence: US)
  Receive Date: 20250123
  Receipt Date: 20250123
  Transmission Date: 20250408
  Serious: Yes (Other)
  Sender: SANOFI AVENTIS
  Company Number: US-DialogSolutions-SAAVPROD-PI734540-C1

PATIENT
  Age: 54 Year
  Sex: Male

DRUGS (9)
  1. ENOXAPARIN SODIUM [Suspect]
     Active Substance: ENOXAPARIN SODIUM
     Indication: Deep vein thrombosis
     Dates: start: 2019
  2. MIDODRINE [Concomitant]
     Active Substance: MIDODRINE
     Indication: Hypotension
     Dates: start: 2019
  3. OCTREOTIDE [Concomitant]
     Active Substance: OCTREOTIDE
     Indication: Ascites
     Dosage: 200 UG, Q8H
     Dates: start: 2019
  4. IMMUNE GLOBULIN NOS [Concomitant]
     Active Substance: IMMUNE GLOBULIN NOS
     Indication: Capillary leak syndrome
     Dosage: 0.4 G/KG, QD
     Route: 042
     Dates: start: 2019, end: 2019
  5. IMMUNE GLOBULIN NOS [Concomitant]
     Active Substance: IMMUNE GLOBULIN NOS
     Dosage: UNK UNK, QW
     Route: 042
     Dates: start: 2019
  6. AMILORIDE [Concomitant]
     Active Substance: AMILORIDE
     Indication: Generalised oedema
     Dosage: UNK UNK, QD
     Dates: start: 2019
  7. BUMETANIDE [Concomitant]
     Active Substance: BUMETANIDE
     Indication: Generalised oedema
     Dosage: UNK UNK, QD
     Dates: start: 2019
  8. AXITINIB [Concomitant]
     Active Substance: AXITINIB
     Indication: Capillary leak syndrome
     Dosage: 5 MG, BID
     Dates: start: 2019
  9. AXITINIB [Concomitant]
     Active Substance: AXITINIB
     Dates: start: 2019

REACTIONS (1)
  - Portal vein thrombosis [Recovering/Resolving]

NARRATIVE: CASE EVENT DATE: 20190101
